FAERS Safety Report 9251068 (Version 1)
Quarter: 2013Q1

REPORT INFORMATION
  Report Type: Spontaneous
  Country: US (occurrence: None)
  Receive Date: 20130305
  Receipt Date: 20130305
  Transmission Date: 20140127
  Serious: Yes (Other)
  Sender: FDA-Public Use
  Company Number: 163-21880-12100116

PATIENT
  Age: 62 Year
  Sex: Female
  Weight: 44.91 kg

DRUGS (16)
  1. REVLIMID [Suspect]
     Indication: PLASMA CELL MYELOMA
     Dosage: 25 MG, 21 IN 28 D, PO
     Route: 048
     Dates: start: 20120907
  2. AMBIEN (ZOLPIDEM TARTRATE) (UNKNOWN [Concomitant]
  3. CORTISONE (CORTISONE) (CREAM) [Concomitant]
     Dosage: TOP
     Route: 061
  4. DEXAMETHASONE (DEXAMETHASONE) (UNKNOWN) [Concomitant]
  5. LOSARTAN (LOSARTAN) (UNKNOWN) [Concomitant]
  6. MORPHINE SULFATE (MORPHINE SULFATE) (UNKNOWN) [Concomitant]
  7. MULTIVITAMINS (MULTIVITAMINS) (UNKNOWN) [Concomitant]
  8. NICOTROL (NICOTINE) (UNKNOWN) [Concomitant]
  9. OMEPRAZOLE (OMEPRAZOLE) (UNKNOWN) [Concomitant]
  10. ONDASETRON (ONDANSETRON) (UNKNOWN) [Concomitant]
  11. PLAVIX (CLOPIDOGREL SULFATE) (UNKNOWN) [Concomitant]
  12. PREMPRO (PROVELLA-14) (UNKNOWN) [Concomitant]
  13. PROAIR (FLUTICASONE PROPIONATE) (UNKNOWN) [Concomitant]
  14. TYLENOL (PARACETAMOL) (UNKNOWN) [Concomitant]
  15. XANAX (ALPRAZOLAM) (UNKNOWN) [Concomitant]
  16. ZOMETA (ZOLEDRONIC ACID) (UNKNOWN) [Concomitant]

REACTIONS (2)
  - Rash [None]
  - Dry mouth [None]
